FAERS Safety Report 20793615 (Version 2)
Quarter: 2022Q2

REPORT INFORMATION
  Report Type: Spontaneous
  Country: GR (occurrence: None)
  Receive Date: 20220506
  Receipt Date: 20220517
  Transmission Date: 20220721
  Serious: Yes (Hospitalization, Other)
  Sender: FDA-Public Use
  Company Number: GR-Unichem Pharmaceuticals (USA) Inc-UCM202204-000422

PATIENT
  Age: 74 Year
  Sex: Male

DRUGS (5)
  1. AMIODARONE HYDROCHLORIDE [Suspect]
     Active Substance: AMIODARONE HYDROCHLORIDE
     Indication: Atrial fibrillation
     Dosage: 5 MG/MIN (300 MG IN 1 HOUR)
     Route: 042
  2. AMIODARONE HYDROCHLORIDE [Suspect]
     Active Substance: AMIODARONE HYDROCHLORIDE
     Dosage: 0.65 MG/MIN (900 MG IN 23 HOURS) TO 0.83 MG/MIN (1200 MG IN 24 HOURS).
     Route: 042
  3. NEOSTIGMINE [Suspect]
     Active Substance: NEOSTIGMINE
     Indication: Intestinal pseudo-obstruction
     Dosage: 2.5 MG OVER A FEW MINUTES
     Route: 042
  4. NEOSTIGMINE [Suspect]
     Active Substance: NEOSTIGMINE
     Route: 042
  5. SILODOSIN [Concomitant]
     Active Substance: SILODOSIN
     Indication: Benign prostatic hyperplasia
     Dosage: UNKNOWN

REACTIONS (2)
  - Drug interaction [Unknown]
  - Atrioventricular block complete [Recovered/Resolved]
